FAERS Safety Report 10252854 (Version 1)
Quarter: 2014Q2

REPORT INFORMATION
  Report Type: Spontaneous
  Country: BR (occurrence: BR)
  Receive Date: 20140623
  Receipt Date: 20140623
  Transmission Date: 20141212
  Serious: Yes (Hospitalization)
  Sender: FDA-Public Use
  Company Number: BR-009507513-1406BRA009079

PATIENT
  Age: 30 Year
  Sex: Female
  Weight: 71 kg

DRUGS (6)
  1. VICTRELIS [Suspect]
     Indication: HEPATITIS C
     Dosage: 800 MG, QD
     Route: 048
     Dates: start: 201310, end: 201401
  2. RIBAVIRIN [Suspect]
     Indication: HEPATITIS C
     Dosage: UNK
     Route: 048
     Dates: start: 2010, end: 2010
  3. RIBAVIRIN [Suspect]
     Dosage: 2 DF, QAM
     Route: 048
     Dates: start: 201310, end: 201401
  4. RIBAVIRIN [Suspect]
     Dosage: 3 DF, QPM
     Route: 048
     Dates: start: 201310, end: 201401
  5. INTERFERON (UNSPECIFIED) [Concomitant]
     Indication: HEPATITIS C
     Dosage: UNK
     Dates: start: 2010, end: 2010
  6. INTERFERON (UNSPECIFIED) [Concomitant]
     Dosage: UNK UNK, QW
     Route: 058
     Dates: start: 201310, end: 201401

REACTIONS (8)
  - Splenomegaly [Not Recovered/Not Resolved]
  - Platelet count decreased [Not Recovered/Not Resolved]
  - Gastric disorder [Not Recovered/Not Resolved]
  - Varicose vein [Recovered/Resolved]
  - Portal hypertension [Unknown]
  - Drug ineffective [Unknown]
  - Underdose [Unknown]
  - Abdominal pain [Unknown]
